FAERS Safety Report 6142683-4 (Version None)
Quarter: 2009Q2

REPORT INFORMATION
  Report Type: 
  Country: None (occurrence: None)
  Receive Date: 20090403
  Receipt Date: 20071212
  Transmission Date: 20091009
  Serious: Yes (Death, Hospitalization, Other)
  Sender: FDA-Public Use
  Company Number: US-ASTRAZENECA-2006UW21385

PATIENT
  Age: 598 Month
  Sex: Female

DRUGS (21)
  1. SEROQUEL [Suspect]
     Indication: DEPRESSION
     Dosage: 100 MG TO 300 MG ONCE A DAY
     Route: 048
     Dates: start: 20010101, end: 20050318
  2. SEROQUEL [Suspect]
     Indication: SLEEP DISORDER
     Dosage: 100 MG TO 300 MG ONCE A DAY
     Route: 048
     Dates: start: 20010101, end: 20050318
  3. SEROQUEL [Suspect]
     Route: 048
     Dates: start: 20050708, end: 20060324
  4. SEROQUEL [Suspect]
     Route: 048
     Dates: start: 20050708, end: 20060324
  5. EFFEXOR XR [Concomitant]
  6. INSULIN [Concomitant]
  7. QUINAPRIL [Concomitant]
  8. PIROXICAM [Concomitant]
  9. HYDROMORPHONE HCL [Concomitant]
  10. METOCLOPRAMIDE [Concomitant]
  11. FAMOTIDINE [Concomitant]
  12. POTASSIUM CHLORIDE [Concomitant]
  13. WARFARIN SODIUM [Concomitant]
  14. AMIODARONE HCL [Concomitant]
  15. GABAPENTIN [Concomitant]
  16. VERAPAMIL [Concomitant]
  17. HEPARIN [Concomitant]
  18. RESTORIL [Concomitant]
     Dates: start: 20050318
  19. FOLIC ACID [Concomitant]
  20. LEXAPRO [Concomitant]
  21. TRAZODONE [Concomitant]

REACTIONS (26)
  - AORTIC DISORDER [None]
  - ARRHYTHMIA [None]
  - ATRIAL FIBRILLATION [None]
  - BLOOD OSMOLARITY DECREASED [None]
  - CARDIOMYOPATHY [None]
  - CHEST PAIN [None]
  - DEATH [None]
  - DEHYDRATION [None]
  - DIABETES MELLITUS [None]
  - DIARRHOEA [None]
  - DRUG ABUSE [None]
  - DYSPNOEA [None]
  - ELECTROCARDIOGRAM ABNORMAL [None]
  - FALL [None]
  - FATIGUE [None]
  - FLATULENCE [None]
  - GASTROINTESTINAL HAEMORRHAGE [None]
  - HYPERTENSION [None]
  - INTESTINAL OBSTRUCTION [None]
  - MALAISE [None]
  - MITRAL VALVE DISEASE [None]
  - PNEUMONIA [None]
  - RASH [None]
  - RENAL FAILURE ACUTE [None]
  - URINARY TRACT INFECTION [None]
  - WEIGHT DECREASED [None]
